FAERS Safety Report 23458381 (Version 1)
Quarter: 2024Q1

REPORT INFORMATION
  Report Type: Spontaneous
  Country: AU (occurrence: AU)
  Receive Date: 20240130
  Receipt Date: 20240130
  Transmission Date: 20240410
  Serious: Yes (Hospitalization)
  Sender: FDA-Public Use
  Company Number: AU-MYLANLABS-2023M1047206

PATIENT
  Age: 61 Year
  Sex: Female

DRUGS (2)
  1. TEMAZEPAM [Suspect]
     Active Substance: TEMAZEPAM
     Indication: Bipolar disorder
     Dosage: UNK
     Route: 065
  2. TRAMADOL [Suspect]
     Active Substance: TRAMADOL\TRAMADOL HYDROCHLORIDE
     Indication: Bipolar disorder
     Dosage: UNK
     Route: 065

REACTIONS (9)
  - Hypoxia [Unknown]
  - Hypotension [Unknown]
  - Leukoencephalopathy [Recovering/Resolving]
  - Intentional overdose [Recovering/Resolving]
  - Mood altered [Unknown]
  - Cognitive disorder [Unknown]
  - Depressed level of consciousness [Unknown]
  - Unresponsive to stimuli [Unknown]
  - Off label use [Unknown]
